FAERS Safety Report 7391236-9 (Version None)
Quarter: 2011Q2

REPORT INFORMATION
  Report Type: 
  Country: None (occurrence: None)
  Receive Date: 20110404
  Receipt Date: 20100505
  Transmission Date: 20111010
  Serious: No
  Sender: FDA-Public Use
  Company Number: US-PFIZER INC-2010057389

PATIENT
  Sex: Female

DRUGS (4)
  1. ALPRAZOLAM [Concomitant]
     Dosage: UNK
  2. AMOXICILLIN AND CLAVULANATE POTASSIUM [Concomitant]
     Dosage: UNK
  3. SERTRALINE HYDROCHLORIDE [Suspect]
     Dosage: 100 MG,
     Route: 048
     Dates: start: 20100401
  4. AZITHROMYCIN [Concomitant]
     Dosage: UNK

REACTIONS (1)
  - HYPERHIDROSIS [None]
